FAERS Safety Report 14242757 (Version 1)
Quarter: 2017Q4

REPORT INFORMATION
  Report Type: Spontaneous
  Country: US (occurrence: US)
  Receive Date: 20171201
  Receipt Date: 20171201
  Transmission Date: 20180321
  Serious: No
  Sender: FDA-Public Use
  Company Number: US-APOTEX-2017AP007310

PATIENT
  Sex: Male

DRUGS (1)
  1. NICOTINE TRANSDERMAL SYSTEM [Suspect]
     Active Substance: NICOTINE
     Indication: SMOKING CESSATION THERAPY
     Dosage: 7 MG, UNK
     Route: 065
     Dates: start: 2017, end: 201702

REACTIONS (7)
  - Expired product administered [Unknown]
  - Application site swelling [Recovered/Resolved]
  - Malaise [Unknown]
  - Application site scab [Unknown]
  - Vomiting [Unknown]
  - Application site pain [Unknown]
  - Application site pruritus [Recovered/Resolved]

NARRATIVE: CASE EVENT DATE: 2017
